FAERS Safety Report 7266176-6 (Version None)
Quarter: 2011Q1

REPORT INFORMATION
  Report Type: 
  Country: None (occurrence: None)
  Receive Date: 20110131
  Receipt Date: 20100816
  Transmission Date: 20110831
  Serious: No
  Sender: FDA-Public Use
  Company Number: US-ABBOTT-10P-163-0664026-00

PATIENT
  Sex: Male

DRUGS (4)
  1. LUPRON DEPOT [Suspect]
     Indication: ANTIANDROGEN THERAPY
  2. STATINS [Concomitant]
  3. CALCIUM [Concomitant]
     Indication: MINERAL SUPPLEMENTATION
  4. VITAMIN D [Concomitant]
     Indication: VITAMIN D DEFICIENCY

REACTIONS (6)
  - BREAST TENDERNESS [None]
  - FEELING ABNORMAL [None]
  - FLUSHING [None]
  - FATIGUE [None]
  - MOOD SWINGS [None]
  - DIZZINESS [None]
